FAERS Safety Report 16754070 (Version 1)
Quarter: 2019Q3

REPORT INFORMATION
  Report Type: Spontaneous
  Country: HR (occurrence: HR)
  Receive Date: 20190829
  Receipt Date: 20190829
  Transmission Date: 20191005
  Serious: Yes (Other)
  Sender: FDA-Public Use
  Company Number: HR-PFIZER INC-2019366719

PATIENT
  Sex: Female

DRUGS (2)
  1. XANAX [Suspect]
     Active Substance: ALPRAZOLAM
     Dosage: 7.5 MG, UNK (10-15 XANAX 0,5 MG)
     Route: 048
     Dates: start: 20190622, end: 20190622
  2. ALCOHOL. [Suspect]
     Active Substance: ALCOHOL
     Dosage: 2 AND A HALF LITERS OF BEER
     Route: 048
     Dates: start: 20190622, end: 20190622

REACTIONS (3)
  - Suicide attempt [Unknown]
  - Intentional overdose [Unknown]
  - Somnolence [Unknown]

NARRATIVE: CASE EVENT DATE: 20190622
